FAERS Safety Report 9740086 (Version 3)
Quarter: 2014Q1

REPORT INFORMATION
  Report Type: Spontaneous
  Country: IT (occurrence: IT)
  Receive Date: 20131209
  Receipt Date: 20140206
  Transmission Date: 20141002
  Serious: Yes (Hospitalization)
  Sender: FDA-Public Use
  Company Number: IT-GLAXOSMITHKLINE-B0950942A

PATIENT
  Age: 86 Year
  Sex: Female

DRUGS (5)
  1. RYTHMOL [Suspect]
     Indication: TACHYCARDIA
     Route: 048
     Dates: start: 20131128, end: 20131128
  2. LASIX [Concomitant]
     Route: 048
  3. LANOXIN [Concomitant]
     Route: 048
  4. ALMARYTM [Concomitant]
     Route: 048
  5. XANAX [Concomitant]
     Route: 048

REACTIONS (6)
  - Asthenia [Recovered/Resolved]
  - Bradycardia [Recovered/Resolved]
  - Nausea [Recovered/Resolved]
  - Vomiting [Recovered/Resolved]
  - Drug abuse [Unknown]
  - Intentional overdose [Recovered/Resolved]
